FAERS Safety Report 6519949-9 (Version None)
Quarter: 2009Q4

REPORT INFORMATION
  Report Type: 
  Country: None (occurrence: None)
  Receive Date: 20091218
  Receipt Date: 20090130
  Transmission Date: 20100525
  Serious: Yes (Hospitalization)
  Sender: FDA-Public Use
  Company Number: WAES 0902USA00608

PATIENT
  Age: 59 Year
  Sex: Female
  Weight: 77.1115 kg

DRUGS (5)
  1. PEPCID [Suspect]
     Indication: GASTROOESOPHAGEAL REFLUX DISEASE
     Dosage: 1 TAB/DAILY/PO
     Route: 048
     Dates: start: 20081209, end: 20081209
  2. PEPCID [Suspect]
     Indication: GASTROOESOPHAGEAL REFLUX DISEASE
     Dosage: 1 TAB/DAILY/PO
     Route: 048
     Dates: start: 20081211, end: 20081211
  3. TAB PEPCID COMPLETE UNK [Suspect]
     Indication: GASTROOESOPHAGEAL REFLUX DISEASE
     Dosage: 1 TAB/PRN/PO
     Route: 048
     Dates: end: 20081209
  4. OMEGA-3 MARINE TRIGLYCERIDES [Concomitant]
  5. VITAMINS [Concomitant]

REACTIONS (1)
  - ANGIOEDEMA [None]
